FAERS Safety Report 7245842-2 (Version None)
Quarter: 2011Q1

REPORT INFORMATION
  Report Type: 
  Country: None (occurrence: None)
  Receive Date: 20110126
  Receipt Date: 20110118
  Transmission Date: 20110831
  Serious: Yes (Disabling)
  Sender: FDA-Public Use
  Company Number: JP-MERCK-1101USA01905

PATIENT
  Age: 57 Year
  Sex: Female

DRUGS (2)
  1. JANUVIA [Suspect]
     Route: 048
     Dates: start: 20100206, end: 20110118
  2. ZETIA [Concomitant]
     Route: 048

REACTIONS (1)
  - MUSCULOSKELETAL PAIN [None]
